FAERS Safety Report 10182139 (Version 2)
Quarter: 2014Q2

REPORT INFORMATION
  Report Type: Spontaneous
  Country: US (occurrence: US)
  Receive Date: 20140520
  Receipt Date: 20140612
  Transmission Date: 20141212
  Serious: No
  Sender: FDA-Public Use
  Company Number: US-B.I. PHARMACEUTICALS,INC./RIDGEFIELD-2014-BI-20408BP

PATIENT
  Age: 50 Year
  Sex: Female

DRUGS (23)
  1. ATROVENT [Suspect]
     Indication: CHRONIC OBSTRUCTIVE PULMONARY DISEASE
     Dosage: 134 MCG
     Route: 055
     Dates: start: 201305
  2. SPIRIVA [Concomitant]
     Indication: CHRONIC OBSTRUCTIVE PULMONARY DISEASE
     Dosage: 18 MCG
     Route: 055
  3. RANITIDINE [Concomitant]
     Indication: GASTROOESOPHAGEAL REFLUX DISEASE
     Dosage: 600 MG
     Route: 048
  4. VICODIN [Concomitant]
     Indication: BACK PAIN
     Dosage: STRENGTH: 5-325 MG
     Route: 048
  5. MORPHINE [Concomitant]
     Indication: BACK PAIN
     Dosage: 45 MG
     Route: 048
  6. GABAPENTIN [Concomitant]
     Indication: NEURALGIA
     Dosage: 1800 MG
     Route: 048
  7. GABAPENTIN [Concomitant]
     Dosage: 800 MG
     Route: 048
  8. TOPAMAX [Concomitant]
     Indication: CONVULSION
     Dosage: 200 MG
     Route: 048
  9. ASPIRIN [Concomitant]
     Indication: CARDIAC DISORDER
     Dosage: 325 MG
     Route: 048
  10. LEVOTHYROXINE [Concomitant]
     Indication: HYPOTHYROIDISM
     Dosage: 175 MCG
     Route: 048
  11. HYDROCHLOROTHIAZIDE [Concomitant]
     Indication: HYPERTENSION
     Dosage: 25 MG
     Route: 048
  12. BUSPIRONE [Concomitant]
     Indication: DEPRESSION
     Dosage: 40 MG
     Route: 048
  13. BUSPIRONE [Concomitant]
     Indication: ANXIETY
  14. BUSPIRONE [Concomitant]
     Indication: PANIC ATTACK
  15. TRAZODONE [Concomitant]
     Indication: INSOMNIA
     Dosage: 100 MG
     Route: 048
  16. LORAZEPAM [Concomitant]
     Indication: CONVULSION
     Dosage: 1 MG
     Route: 048
  17. VITAMIN D [Concomitant]
     Indication: VITAMIN SUPPLEMENTATION
     Dosage: 2000 U
     Route: 048
  18. ZOFRAN [Concomitant]
     Indication: NAUSEA
     Route: 048
  19. ZOFRAN [Concomitant]
     Indication: VOMITING
  20. BUTALBITOL [Concomitant]
     Indication: MIGRAINE
     Route: 048
  21. TRICOR [Concomitant]
     Indication: BLOOD CHOLESTEROL INCREASED
     Dosage: 145 MG
     Route: 048
  22. SIMETHICONE [Concomitant]
     Indication: FLATULENCE
     Route: 048
  23. NIACIN TR [Concomitant]
     Indication: BLOOD TRIGLYCERIDES INCREASED
     Dosage: 500 MG
     Route: 048

REACTIONS (1)
  - Dyspnoea [Not Recovered/Not Resolved]
